FAERS Safety Report 5913264-X (Version None)
Quarter: 2008Q4

REPORT INFORMATION
  Report Type: 
  Country: None (occurrence: None)
  Receive Date: 20081008
  Receipt Date: 20081008
  Transmission Date: 20090506
  Serious: Yes (Other)
  Sender: FDA-Public Use
  Company Number: None

PATIENT
  Age: 31 Year
  Sex: Female
  Weight: 60.3284 kg

DRUGS (3)
  1. AMITIZA [Suspect]
     Indication: CONSTIPATION
     Dosage: 24 MCG 1 BID PO
     Route: 048
     Dates: start: 20080916, end: 20080917
  2. YASMIN [Concomitant]
  3. MULTI-VITAMIN [Concomitant]

REACTIONS (1)
  - ASTHMA [None]
